FAERS Safety Report 9293086 (Version 1)
Quarter: 2013Q2

REPORT INFORMATION
  Report Type: Spontaneous
  Country: US (occurrence: None)
  Receive Date: 20130515
  Receipt Date: 20130515
  Transmission Date: 20140414
  Serious: No
  Sender: FDA-Public Use
  Company Number: None

PATIENT
  Age: 24 Year
  Sex: Male

DRUGS (1)
  1. ASTHMACARE [Suspect]
     Indication: ASTHMA

REACTIONS (2)
  - Chest pain [None]
  - Heart rate increased [None]
